FAERS Safety Report 13802182 (Version 1)
Quarter: 2017Q3

REPORT INFORMATION
  Report Type: Spontaneous
  Country: US (occurrence: US)
  Receive Date: 20170727
  Receipt Date: 20170727
  Transmission Date: 20171127
  Serious: Yes (Hospitalization, Other)
  Sender: FDA-Public Use
  Company Number: US-TEIKOKU PHARMA USA-TPU2016-00043

PATIENT
  Sex: Female
  Weight: 120.31 kg

DRUGS (7)
  1. COMPOUND PAIN CREAM ^KETOPROF/BACLO/BYC/GABA/LIDOC^ [Concomitant]
     Indication: PAIN IN EXTREMITY
  2. COMPOUND PAIN CREAM ^KETOPROF/BACLO/BYC/GABA/LIDOC^ [Concomitant]
     Indication: PAIN IN EXTREMITY
  3. LIDODERM [Suspect]
     Active Substance: LIDOCAINE
     Indication: PAIN IN EXTREMITY
  4. LIDODERM [Suspect]
     Active Substance: LIDOCAINE
     Indication: PAIN IN EXTREMITY
     Dosage: ONE 5% PATCH CUT INTO THREE PIECES TO ARMS AND LEGS AS NEEDED
     Route: 061
  5. OXYCONTIN [Suspect]
     Active Substance: OXYCODONE HYDROCHLORIDE
     Indication: PAIN
  6. OXYCODONE [Suspect]
     Active Substance: OXYCODONE
     Indication: PAIN
     Dosage: 3 TO 7 TABLETS PER DAY FOR ^PEAK^ PAIN
  7. AMBIEN [Concomitant]
     Active Substance: ZOLPIDEM TARTRATE
     Indication: SLEEP DISORDER
     Dosage: 1/2 TO 1 TABLET AS NEEDED

REACTIONS (16)
  - Arrhythmia [Not Recovered/Not Resolved]
  - Vein collapse [Unknown]
  - Pain in extremity [Unknown]
  - Muscle spasms [Not Recovered/Not Resolved]
  - Herpes zoster [Unknown]
  - Pyrexia [Unknown]
  - Wrong technique in product usage process [Unknown]
  - Memory impairment [Unknown]
  - Chest pain [Not Recovered/Not Resolved]
  - Application site irritation [Unknown]
  - Limb operation [Unknown]
  - Gallbladder disorder [Unknown]
  - Thrombosis [Unknown]
  - Stress [Unknown]
  - Insomnia [Unknown]
  - Gallbladder operation [Unknown]

NARRATIVE: CASE EVENT DATE: 2005
